FAERS Safety Report 12822581 (Version 1)
Quarter: 2016Q4

REPORT INFORMATION
  Report Type: Spontaneous
  Country: US (occurrence: US)
  Receive Date: 20161006
  Receipt Date: 20161006
  Transmission Date: 20170207
  Serious: No
  Sender: FDA-Public Use
  Company Number: US-SHIONOGI, INC-2016000668

PATIENT
  Age: 52 Year
  Sex: Female

DRUGS (2)
  1. OSPHENA [Suspect]
     Active Substance: OSPEMIFENE
     Indication: OFF LABEL USE
     Dosage: EVERY OTHER DAY
     Route: 065
     Dates: start: 2016
  2. OSPHENA [Suspect]
     Active Substance: OSPEMIFENE
     Indication: VULVOVAGINAL DRYNESS
     Dosage: 60 MG, QD AT NIGHT WITH FOOD
     Route: 048
     Dates: start: 20160611, end: 20160628

REACTIONS (9)
  - Off label use [Unknown]
  - Inappropriate schedule of drug administration [Unknown]
  - Headache [Recovered/Resolved]
  - Therapeutic response unexpected [Unknown]
  - Pruritus generalised [Unknown]
  - Burning sensation [Unknown]
  - Nightmare [Unknown]
  - Sensory disturbance [Unknown]
  - Off label use [Unknown]

NARRATIVE: CASE EVENT DATE: 201606
